FAERS Safety Report 24126726 (Version 1)
Quarter: 2024Q3

REPORT INFORMATION
  Report Type: Spontaneous
  Country: CN (occurrence: CN)
  Receive Date: 20240723
  Receipt Date: 20240723
  Transmission Date: 20241016
  Serious: Yes (Hospitalization, Other)
  Sender: PFIZER
  Company Number: CN-PFIZER INC-PV202400092906

PATIENT
  Age: 77 Year
  Sex: Female

DRUGS (1)
  1. METHYLPREDNISOLONE [Suspect]
     Active Substance: METHYLPREDNISOLONE
     Indication: COVID-19
     Dosage: GRADUALLY REDUCED TO 8 MG DAILY
     Route: 048

REACTIONS (3)
  - Meningitis listeria [Unknown]
  - Off label use [Unknown]
  - Drug effective for unapproved indication [Unknown]
